FAERS Safety Report 9626723 (Version 2)
Quarter: 2013Q4

REPORT INFORMATION
  Report Type: Report from Study
  Country: US (occurrence: US)
  Receive Date: 20131016
  Receipt Date: 20131016
  Transmission Date: 20140711
  Serious: Yes (Hospitalization, Other)
  Sender: FDA-Public Use
  Company Number: US-ACTELION-A-US2007-14729

PATIENT
  Age: 66 Year
  Sex: Female
  Weight: 73.47 kg

DRUGS (24)
  1. TRACLEER [Suspect]
     Indication: PULMONARY ARTERIAL HYPERTENSION
     Dosage: 125 MG, BID
     Route: 048
     Dates: start: 20050823
  2. TRACLEER [Suspect]
     Dosage: 62.5 MG, BID
     Route: 048
     Dates: start: 20050823
  3. VENTAVIS [Concomitant]
     Indication: PULMONARY ARTERIAL HYPERTENSION
     Dosage: 2.5 UG, 6 X DAY
     Dates: start: 20060606
  4. VENTAVIS [Concomitant]
     Dosage: 5 UG, 6 X DAY
     Route: 055
     Dates: start: 20060428, end: 20060605
  5. ZETIA [Concomitant]
     Dosage: 10 MG, QD
     Dates: start: 2009
  6. ASPIRIN [Concomitant]
  7. PLAVIX [Concomitant]
  8. LASIX [Concomitant]
  9. POTASSIUM CHLORIDE [Concomitant]
  10. VITAMIN C [Concomitant]
  11. IRON [Concomitant]
  12. SPIRONOLACTONE [Concomitant]
  13. TOPROL [Concomitant]
  14. ISOSORBIDE MONONITRATE [Concomitant]
  15. IRON DEXTRAN INJECTION [Concomitant]
  16. ZYRTEC [Concomitant]
  17. PREVACID [Concomitant]
  18. HYDROCHLOROTHIAZIDE [Concomitant]
  19. NITROGLYCERIN [Concomitant]
  20. OXYGEN [Concomitant]
  21. KLONOPIN [Concomitant]
     Dosage: 0.5 MG, UNK
  22. LOPRESSOR [Concomitant]
     Dosage: 12.5 MG, BID
  23. ZOLOFT [Concomitant]
     Dosage: 100 MG, UNK
  24. LUMIGAN [Concomitant]
     Dosage: 1 DROP, UNK

REACTIONS (21)
  - Iron deficiency anaemia [Not Recovered/Not Resolved]
  - Haemoglobin decreased [Not Recovered/Not Resolved]
  - Haematocrit decreased [Not Recovered/Not Resolved]
  - Blood count abnormal [Recovered/Resolved]
  - Coronary artery disease [Unknown]
  - Stent placement [Unknown]
  - Coronary artery occlusion [Unknown]
  - Oedema peripheral [Not Recovered/Not Resolved]
  - Pain in extremity [Unknown]
  - Insomnia [Unknown]
  - Stress [Unknown]
  - Urine output decreased [Not Recovered/Not Resolved]
  - Dizziness [Unknown]
  - Fatigue [Not Recovered/Not Resolved]
  - Glossodynia [Recovered/Resolved]
  - Chest pain [Unknown]
  - Fatigue [Not Recovered/Not Resolved]
  - Pain in jaw [Unknown]
  - Decreased appetite [Recovered/Resolved]
  - Pulmonary arterial hypertension [Unknown]
  - Disease progression [Unknown]
